FAERS Safety Report 6613478-X (Version None)
Quarter: 2010Q1

REPORT INFORMATION
  Report Type: 
  Country: None (occurrence: None)
  Receive Date: 20100304
  Receipt Date: 20100223
  Transmission Date: 20100710
  Serious: Yes (Other)
  Sender: FDA-Public Use
  Company Number: US-JNJFOC-20100210420

PATIENT
  Sex: Female

DRUGS (1)
  1. LEVAQUIN [Suspect]
     Indication: DRUG USE FOR UNKNOWN INDICATION
     Route: 065

REACTIONS (6)
  - DEPRESSION [None]
  - HEART RATE INCREASED [None]
  - HYPERSENSITIVITY [None]
  - MALAISE [None]
  - THINKING ABNORMAL [None]
  - WEIGHT DECREASED [None]
